FAERS Safety Report 25060341 (Version 1)
Quarter: 2025Q1

REPORT INFORMATION
  Report Type: Spontaneous
  Country: US (occurrence: US)
  Receive Date: 20250310
  Receipt Date: 20250310
  Transmission Date: 20250409
  Serious: No
  Sender: SANOFI AVENTIS
  Company Number: US-SA-2025SA069815

PATIENT
  Age: 68 Year
  Sex: Female

DRUGS (31)
  1. REZUROCK [Suspect]
     Active Substance: BELUMOSUDIL
     Indication: Graft versus host disease
     Dosage: 200 MG, QD
     Route: 048
     Dates: start: 20250304
  2. REZUROCK [Suspect]
     Active Substance: BELUMOSUDIL
     Dosage: 200 MG, BID
     Route: 048
  3. ELIQUIS [Concomitant]
     Active Substance: APIXABAN
  4. ATOVAQUONE [Concomitant]
     Active Substance: ATOVAQUONE
  5. AZITHROMYCIN [Concomitant]
     Active Substance: AZITHROMYCIN
  6. CALCIUM CITRATE [Concomitant]
     Active Substance: CALCIUM CITRATE
  7. VITAMIN D [Concomitant]
     Active Substance: VITAMIN D NOS
  8. CYANOCOBALAMIN [Concomitant]
     Active Substance: CYANOCOBALAMIN
  9. FAMOTIDINE [Concomitant]
     Active Substance: FAMOTIDINE
  10. FOLIC ACID [Concomitant]
     Active Substance: FOLIC ACID
  11. FUROSEMIDE [Concomitant]
     Active Substance: FUROSEMIDE
  12. GABAPENTIN [Concomitant]
     Active Substance: GABAPENTIN
  13. PREVYMIS [Concomitant]
     Active Substance: LETERMOVIR
  14. MIRTAZAPINE [Concomitant]
     Active Substance: MIRTAZAPINE
  15. VITAMINS [Concomitant]
     Active Substance: VITAMINS
  16. OLANZAPINE [Concomitant]
     Active Substance: OLANZAPINE
  17. POSACONAZOLE [Concomitant]
     Active Substance: POSACONAZOLE
  18. POTASSIUM CHLORIDE [Concomitant]
     Active Substance: POTASSIUM CHLORIDE
  19. PREDNISONE [Concomitant]
     Active Substance: PREDNISONE
  20. PROCHLORPERAZINE [Concomitant]
     Active Substance: PROCHLORPERAZINE
  21. JAKAFI [Concomitant]
     Active Substance: RUXOLITINIB
  22. RAPAMUNE [Concomitant]
     Active Substance: SIROLIMUS
  23. VITAMIN B1 [Concomitant]
     Active Substance: THIAMINE HYDROCHLORIDE
  24. TRAMADOL [Concomitant]
     Active Substance: TRAMADOL
  25. TRAZODONE [Concomitant]
     Active Substance: TRAZODONE HYDROCHLORIDE
  26. STELARA [Concomitant]
     Active Substance: USTEKINUMAB
  27. VALACYCLOVIR [Concomitant]
     Active Substance: VALACYCLOVIR HYDROCHLORIDE
  28. TRINTELLIX [Concomitant]
     Active Substance: VORTIOXETINE HYDROBROMIDE
  29. DOXYCYCLINE [Concomitant]
     Active Substance: DOXYCYCLINE
  30. Hyclate [Concomitant]
  31. CALCIUM CITRATE [Concomitant]
     Active Substance: CALCIUM CITRATE

REACTIONS (2)
  - Product prescribing issue [Unknown]
  - Inappropriate schedule of product administration [Unknown]
